FAERS Safety Report 15452100 (Version 2)
Quarter: 2018Q4

REPORT INFORMATION
  Report Type: Spontaneous
  Country: BE (occurrence: BE)
  Receive Date: 20181001
  Receipt Date: 20181101
  Transmission Date: 20190204
  Serious: Yes (Hospitalization, Other)
  Sender: FDA-Public Use
  Company Number: BE-SA-2018SA269623

PATIENT
  Age: 60 Year
  Sex: Female

DRUGS (1)
  1. AUBAGIO [Suspect]
     Active Substance: TERIFLUNOMIDE
     Indication: MULTIPLE SCLEROSIS
     Dosage: UNK
     Dates: start: 201807, end: 20180925

REACTIONS (8)
  - Neutropenia [Unknown]
  - Oedema peripheral [Unknown]
  - Asthenia [Unknown]
  - Fatigue [Unknown]
  - Musculoskeletal pain [Unknown]
  - Alopecia [Unknown]
  - Headache [Unknown]
  - Lymphopenia [Unknown]
